FAERS Safety Report 8083227-X (Version None)
Quarter: 2012Q1

REPORT INFORMATION
  Report Type: 
  Country: None (occurrence: None)
  Receive Date: 20120127
  Receipt Date: 20110302
  Transmission Date: 20120608
  Serious: No
  Sender: FDA-Public Use
  Company Number: US-ABBOTT-11P-163-0709029-00

PATIENT
  Sex: Female
  Weight: 61.29 kg

DRUGS (19)
  1. HUMIRA [Suspect]
     Indication: CROHN'S DISEASE
     Dates: start: 20090728, end: 20090930
  2. COFFEE [Concomitant]
     Indication: PRODUCT USED FOR UNKNOWN INDICATION
     Dosage: 1 SERVING DAILY
     Route: 048
     Dates: start: 20090728, end: 20091031
  3. KEFLEX [Concomitant]
     Indication: ABSCESS
     Route: 048
     Dates: start: 20100319, end: 20100329
  4. ACETAMINOPHEN [Concomitant]
     Indication: PAIN
     Route: 048
     Dates: start: 20100301, end: 20100301
  5. MULTI-VITAMINS [Concomitant]
     Indication: PRODUCT USED FOR UNKNOWN INDICATION
     Dosage: 1 PILL DAILY
     Route: 048
     Dates: start: 20090828, end: 20100430
  6. FOLIC ACID [Concomitant]
     Indication: CROHN'S DISEASE
     Dosage: 2 PILLS DAILY
     Route: 048
     Dates: start: 20090728, end: 20100430
  7. COFFEE [Concomitant]
     Dosage: .5 SERVING DAILY
     Route: 048
     Dates: start: 20091101, end: 20100101
  8. ACETAMINOPHEN [Concomitant]
     Indication: HEADACHE
     Dosage: 2 PILLS TOTAL
     Route: 048
     Dates: start: 20100324, end: 20100430
  9. TEA [Concomitant]
     Indication: PRODUCT USED FOR UNKNOWN INDICATION
     Dosage: 2 SERVINGS WEEKLY
     Route: 048
     Dates: start: 20090728, end: 20100201
  10. CAFFEINE CITRATE [Concomitant]
     Dosage: 2 SERVINGS WEEKLY
     Route: 048
     Dates: start: 20100202, end: 20100430
  11. VITAMIN B-12 [Concomitant]
     Indication: ANAEMIA
     Route: 050
     Dates: start: 20090728, end: 20100430
  12. FLU VACCINE NOS [Concomitant]
     Indication: PRODUCT USED FOR UNKNOWN INDICATION
     Dosage: 1 TOTAL
     Route: 050
     Dates: start: 20091001, end: 20091031
  13. KEFLEX [Concomitant]
     Route: 048
     Dates: start: 20091113, end: 20091123
  14. TEA [Concomitant]
     Dosage: 1 SERVING
     Route: 048
     Dates: start: 20100202, end: 20100430
  15. CAFFEINE CITRATE [Concomitant]
     Indication: PRODUCT USED FOR UNKNOWN INDICATION
     Dosage: 1 SERVING WEEKLY
     Route: 048
     Dates: start: 20090728, end: 20100201
  16. TAMIFLU [Concomitant]
     Indication: PROPHYLAXIS
     Dosage: 1 PILL DAILY
     Route: 048
     Dates: start: 20091028, end: 20091104
  17. XUPIROCIN [Concomitant]
     Indication: PRODUCT USED FOR UNKNOWN INDICATION
     Route: 061
     Dates: start: 20100310, end: 20100317
  18. PENTASA [Concomitant]
     Route: 048
     Dates: start: 20100401, end: 20100430
  19. PENTASA [Concomitant]
     Indication: CROHN'S DISEASE
     Route: 048
     Dates: start: 20090728, end: 20100401

REACTIONS (3)
  - ABDOMINAL DISCOMFORT [None]
  - ABSCESS ORAL [None]
  - HEADACHE [None]
